FAERS Safety Report 5201900-5 (Version None)
Quarter: 2007Q1

REPORT INFORMATION
  Report Type: 
  Country: None (occurrence: None)
  Receive Date: 20070104
  Receipt Date: 20061221
  Transmission Date: 20070707
  Serious: Yes (Other)
  Sender: FDA-Public Use
  Company Number: RENA-12075

PATIENT
  Age: 44 Year
  Sex: Female

DRUGS (9)
  1. RENAGEL [Suspect]
     Indication: HYPERPHOSPHATAEMIA
     Dosage: 2.4 G TID PO
     Route: 048
     Dates: start: 20051127
  2. RENAGEL [Suspect]
     Indication: HYPERPHOSPHATAEMIA
     Dosage: 3.2 G TID PO
     Route: 048
     Dates: start: 20061001
  3. RENAGEL [Suspect]
     Indication: HYPERPHOSPHATAEMIA
     Dosage: 4 G TID PO
     Route: 048
     Dates: start: 20061116
  4. VASTAREL [Concomitant]
  5. NEORECORMON [Concomitant]
  6. ENALAPRIL 20 [Concomitant]
  7. KAYEXALATE [Concomitant]
  8. LAROSCORBINE [Concomitant]
  9. KEAL [Concomitant]

REACTIONS (2)
  - DIVERTICULITIS [None]
  - INFLAMMATION [None]
